FAERS Safety Report 11427468 (Version 1)
Quarter: 2015Q3

REPORT INFORMATION
  Report Type: Spontaneous
  Country: US (occurrence: None)
  Receive Date: 20150827
  Receipt Date: 20150827
  Transmission Date: 20151125
  Serious: Yes (Hospitalization)
  Sender: FDA-Public Use
  Company Number: None

PATIENT
  Age: 67 Year
  Sex: Male
  Weight: 64.96 kg

DRUGS (1)
  1. ERBITUX [Suspect]
     Active Substance: CETUXIMAB
     Dates: end: 20150817

REACTIONS (10)
  - Asthenia [None]
  - Encephalopathy [None]
  - Dysphagia [None]
  - Pyrexia [None]
  - Hypotension [None]
  - Pneumonia [None]
  - Septic shock [None]
  - Acute kidney injury [None]
  - Aspiration [None]
  - Confusional state [None]

NARRATIVE: CASE EVENT DATE: 20150819
